FAERS Safety Report 9070824 (Version 1)
Quarter: 2013Q1

REPORT INFORMATION
  Report Type: Spontaneous
  Country: US (occurrence: US)
  Receive Date: 20130206
  Receipt Date: 20130206
  Transmission Date: 20140127
  Serious: No
  Sender: FDA-Public Use
  Company Number: US-ALLERGAN-1205836US

PATIENT
  Age: 63 Year
  Sex: Female

DRUGS (1)
  1. RESTASIS? [Suspect]
     Indication: DRY EYE
     Dosage: 2 GTT, BID
     Route: 047
     Dates: start: 20120420, end: 20120424

REACTIONS (6)
  - Incorrect route of drug administration [Unknown]
  - Photopsia [Unknown]
  - Migraine [Unknown]
  - Pain [Unknown]
  - Dizziness [Unknown]
  - Headache [Recovered/Resolved]
